FAERS Safety Report 22905278 (Version 3)
Quarter: 2023Q4

REPORT INFORMATION
  Report Type: Report from Study
  Country: JP (occurrence: None)
  Receive Date: 20230905
  Receipt Date: 20231229
  Transmission Date: 20240109
  Serious: Yes (Hospitalization, Other)
  Sender: FDA-Public Use
  Company Number: 2023A199311

PATIENT
  Age: 62 Year
  Sex: Male
  Weight: 58 kg

DRUGS (4)
  1. CALQUENCE [Suspect]
     Active Substance: ACALABRUTINIB
     Indication: Chronic lymphocytic leukaemia
     Route: 048
     Dates: start: 202304, end: 2023
  2. GAZYVA [Concomitant]
     Active Substance: OBINUTUZUMAB
     Dosage: 100.0MG UNKNOWN
  3. GAZYVA [Concomitant]
     Active Substance: OBINUTUZUMAB
     Dosage: 900.0MG UNKNOWN
  4. GAZYVA [Concomitant]
     Active Substance: OBINUTUZUMAB
     Dosage: 1000.0MG UNKNOWN

REACTIONS (6)
  - Atrial fibrillation [Recovered/Resolved]
  - COVID-19 [Recovered/Resolved]
  - Pyrexia [Recovered/Resolved]
  - Weight increased [Unknown]
  - Injection related reaction [Recovered/Resolved]
  - Supraventricular extrasystoles [Recovered/Resolved]

NARRATIVE: CASE EVENT DATE: 20230101
